FAERS Safety Report 9689800 (Version 3)
Quarter: 2014Q1

REPORT INFORMATION
  Report Type: Spontaneous
  Country: AU (occurrence: AU)
  Receive Date: 20131115
  Receipt Date: 20140319
  Transmission Date: 20141002
  Serious: Yes (Other)
  Sender: FDA-Public Use
  Company Number: AU-BRISTOL-MYERS SQUIBB COMPANY-19792134

PATIENT
  Age: 56 Year
  Sex: Male

DRUGS (5)
  1. BYETTA [Suspect]
     Indication: TYPE 2 DIABETES MELLITUS
     Route: 058
     Dates: start: 20101011, end: 20110502
  2. BYETTA [Suspect]
     Indication: OBESITY
     Route: 058
     Dates: start: 20101011, end: 20110502
  3. METFORMIN [Concomitant]
     Dates: start: 2006
  4. CANDESARTAN CILEXETIL + HCTZ [Concomitant]
     Dosage: 1DF: 32/12.5 UNITS NOS
  5. LANTUS [Concomitant]
     Dates: start: 2007

REACTIONS (2)
  - Tubulointerstitial nephritis [Recovering/Resolving]
  - Renal failure [Recovering/Resolving]
